FAERS Safety Report 13620894 (Version 2)
Quarter: 2017Q3

REPORT INFORMATION
  Report Type: Spontaneous
  Country: US (occurrence: JP)
  Receive Date: 20170607
  Receipt Date: 20170703
  Transmission Date: 20171127
  Serious: Yes (Death, Hospitalization)
  Sender: FDA-Public Use
  Company Number: US-SUNOVION-2017SUN002430

PATIENT
  Age: 90 Year
  Sex: Male

DRUGS (1)
  1. INDACATEROL [Suspect]
     Active Substance: INDACATEROL
     Indication: CHRONIC OBSTRUCTIVE PULMONARY DISEASE
     Dosage: TWICE (2 CAPSULES) IN THE MORNING, 1 CAPSULE AT NIGHT: TOTAL 3 TIMES A DAY, UP TO 4 TIMES;INHALATION
     Route: 055

REACTIONS (2)
  - Cardiac failure [Fatal]
  - Overdose [Unknown]
